FAERS Safety Report 9397324 (Version 1)
Quarter: 2013Q3

REPORT INFORMATION
  Report Type: Spontaneous
  Country: US (occurrence: None)
  Receive Date: 20130711
  Receipt Date: 20130711
  Transmission Date: 20140515
  Serious: No
  Sender: FDA-Public Use
  Company Number: None

PATIENT
  Age: 58 Year
  Sex: Female
  Weight: 81.65 kg

DRUGS (19)
  1. LITHIUM [Suspect]
     Indication: BIPOLAR DISORDER
     Route: 048
     Dates: start: 20090928
  2. LOW DOSE ASPIRIN [Concomitant]
  3. ALBUTEROL SULFATE [Concomitant]
  4. NEB SOLUTION [Concomitant]
  5. CALCIUM 500 PLUS D [Concomitant]
  6. DOCUSATE SODIUM [Concomitant]
  7. FIBER LAX [Concomitant]
  8. GLYCOLAX [Concomitant]
  9. HYOHLEKYANE [Concomitant]
  10. LEVOTHYROXEINE [Concomitant]
  11. LITHIUM CARBONATED [Concomitant]
  12. LOVATADINE [Concomitant]
  13. METOPROLOL TARTATE [Concomitant]
  14. SEROQUEL [Concomitant]
  15. SIMVASTATIN [Concomitant]
  16. SPIRIVA [Concomitant]
  17. SYMBICORT [Concomitant]
  18. MULTIVITAMIN [Concomitant]
  19. VITAMIN D [Concomitant]

REACTIONS (7)
  - Malaise [None]
  - Weight increased [None]
  - Balance disorder [None]
  - Tremor [None]
  - Vision blurred [None]
  - Vitreous floaters [None]
  - Contraindication to medical treatment [None]
